FAERS Safety Report 5148488-5 (Version None)
Quarter: 2006Q4

REPORT INFORMATION
  Report Type: 
  Country: None (occurrence: None)
  Receive Date: 20061106
  Receipt Date: 20061031
  Transmission Date: 20070319
  Serious: Yes (Hospitalization, Other)
  Sender: FDA-Public Use
  Company Number: HQWYE105820DEC05

PATIENT
  Age: 63 Year
  Sex: Male

DRUGS (5)
  1. CYCLOSPORINE [Suspect]
     Indication: PROPHYLAXIS AGAINST TRANSPLANT REJECTION
     Dosage: 200 MG 1X PER 1 DAY ORAL
     Route: 048
     Dates: start: 20051119
  2. PREDNISOLONE [Suspect]
     Dosage: VARING DOSE DOWN TO 5 MG DAILY
     Dates: start: 20051129, end: 20060817
  3. AMLODIPINE [Concomitant]
  4. SULFAMETHIZOLE (SULFAMETHIZOLE) [Concomitant]
  5. TRIMETHOPRIM [Concomitant]

REACTIONS (2)
  - LYMPHOCELE [None]
  - POST PROCEDURAL COMPLICATION [None]
